FAERS Safety Report 23348067 (Version 1)
Quarter: 2023Q4

REPORT INFORMATION
  Report Type: Spontaneous
  Country: US (occurrence: None)
  Receive Date: 20231228
  Receipt Date: 20231228
  Transmission Date: 20240110
  Serious: No
  Sender: FDA-Public Use
  Company Number: None

PATIENT
  Sex: Male

DRUGS (1)
  1. STELARA [Suspect]
     Active Substance: USTEKINUMAB
     Indication: Crohn^s disease
     Dosage: 90MG/ML  EVERY 8 WEEKS SUBCUTANEOUS?
     Route: 058
     Dates: start: 202311

REACTIONS (3)
  - Crohn^s disease [None]
  - Abdominal pain [None]
  - Gastrointestinal pain [None]
